FAERS Safety Report 5267928-4 (Version None)
Quarter: 2007Q1

REPORT INFORMATION
  Report Type: 
  Country: None (occurrence: None)
  Receive Date: 20061213
  Receipt Date: 20050509
  Transmission Date: 20070707
  Serious: Yes (Hospitalization)
  Sender: FDA-Public Use
  Company Number: 2005UW07103

PATIENT
  Age: 58 Year
  Sex: Female

DRUGS (2)
  1. TAMOXIFEN CITRATE [Suspect]
     Indication: ILL-DEFINED DISORDER
  2. HYDROCHLOROTHIAZIDE [Concomitant]

REACTIONS (1)
  - PULMONARY EMBOLISM [None]
